FAERS Safety Report 5913517-5 (Version None)
Quarter: 2008Q4

REPORT INFORMATION
  Report Type: 
  Country: None (occurrence: None)
  Receive Date: 20081006
  Receipt Date: 20080922
  Transmission Date: 20090506
  Serious: Yes (Other)
  Sender: FDA-Public Use
  Company Number: 08AE002

PATIENT
  Age: 49 Year
  Sex: Female
  Weight: 99.7913 kg

DRUGS (5)
  1. COVARYX (ESTERIFIED ESTROGENS 1.25MG / METHYLTETOSTERONE 2.5 MG) TAB, [Suspect]
     Indication: HYSTERECTOMY
     Dosage: 1  TAB DAILY BY MOUTH
     Route: 002
     Dates: start: 20071219
  2. COVARYX (ESTERIFIED ESTROGENS 1.25MG / METHYLTETOSTERONE 2.5 MG) TAB, [Suspect]
     Indication: MENOPAUSAL SYMPTOMS
     Dosage: 1  TAB DAILY BY MOUTH
     Route: 002
     Dates: start: 20071219
  3. COVARYX (ESTERIFIED ESTROGENS 1.25MG / METHYLTETOSTERONE 2.5 MG) TAB, [Suspect]
     Indication: HYSTERECTOMY
     Dosage: 1  TAB DAILY BY MOUTH
     Route: 002
     Dates: start: 20080201
  4. COVARYX (ESTERIFIED ESTROGENS 1.25MG / METHYLTETOSTERONE 2.5 MG) TAB, [Suspect]
     Indication: MENOPAUSAL SYMPTOMS
     Dosage: 1  TAB DAILY BY MOUTH
     Route: 002
     Dates: start: 20080201
  5. VICODIN [Concomitant]

REACTIONS (2)
  - RASH GENERALISED [None]
  - RASH PRURITIC [None]
